FAERS Safety Report 21684598 (Version 18)
Quarter: 2023Q4

REPORT INFORMATION
  Report Type: Report from Study
  Country: US (occurrence: US)
  Receive Date: 20221205
  Receipt Date: 20231221
  Transmission Date: 20240109
  Serious: Yes (Hospitalization, Other)
  Sender: FDA-Public Use
  Company Number: US-TAKEDA-2022TUS084336

PATIENT
  Sex: Female

DRUGS (2)
  1. HUMAN IMMUNOGLOBULIN G [Suspect]
     Active Substance: HUMAN IMMUNOGLOBULIN G
     Indication: Primary immunodeficiency syndrome
     Dosage: UNK
     Route: 065
  2. HUMAN IMMUNOGLOBULIN G [Suspect]
     Active Substance: HUMAN IMMUNOGLOBULIN G
     Indication: Immunodeficiency common variable

REACTIONS (29)
  - Blindness [Unknown]
  - Loss of consciousness [Unknown]
  - Concussion [Unknown]
  - Ischaemia [Unknown]
  - Intracranial pressure increased [Unknown]
  - Head injury [Unknown]
  - Pneumonia [Unknown]
  - Central nervous system infection [Unknown]
  - Seizure [Unknown]
  - Hypertension [Unknown]
  - Hip fracture [Unknown]
  - Illness [Unknown]
  - Ankle fracture [Unknown]
  - COVID-19 [Unknown]
  - Fall [Unknown]
  - Bacterial infection [Unknown]
  - Insomnia [Unknown]
  - Visual impairment [Unknown]
  - Malaise [Unknown]
  - Vomiting [Unknown]
  - Nausea [Unknown]
  - Headache [Unknown]
  - Catheter site pain [Unknown]
  - Urinary tract infection [Unknown]
  - Post procedural haemorrhage [Unknown]
  - Optic nerve disorder [Unknown]
  - Post procedural pruritus [Unknown]
  - Migraine [Unknown]
  - Product dose omission issue [Unknown]
